FAERS Safety Report 24827566 (Version 1)
Quarter: 2025Q1

REPORT INFORMATION
  Report Type: Spontaneous
  Country: AU (occurrence: AU)
  Receive Date: 20250109
  Receipt Date: 20250109
  Transmission Date: 20250408
  Serious: Yes (Other)
  Sender: SANOFI AVENTIS
  Company Number: AU-SA-2025SA004786

PATIENT
  Sex: Female
  Weight: 86 kg

DRUGS (9)
  1. ENOXAPARIN SODIUM [Suspect]
     Active Substance: ENOXAPARIN SODIUM
  2. FLEBOGAMMA [Suspect]
     Active Substance: HUMAN IMMUNOGLOBULIN G
  3. CEPHALEXIN MONOHYDRATE [Concomitant]
     Active Substance: CEPHALEXIN MONOHYDRATE
  4. CLOBAZAM [Concomitant]
     Active Substance: CLOBAZAM
  5. LEVOTHYROXINE SODIUM [Concomitant]
     Active Substance: LEVOTHYROXINE SODIUM
  6. METRONIDAZOLE [Concomitant]
     Active Substance: METRONIDAZOLE
  7. MIRTAZAPINE [Concomitant]
     Active Substance: MIRTAZAPINE
  8. RANITIDINE [Concomitant]
     Active Substance: RANITIDINE
  9. ZOLPIDEM TARTRATE [Concomitant]
     Active Substance: ZOLPIDEM TARTRATE

REACTIONS (13)
  - Transfusion-related acute lung injury [Unknown]
  - Non-cardiogenic pulmonary oedema [Unknown]
  - Back pain [Unknown]
  - Body temperature increased [Unknown]
  - Chest discomfort [Unknown]
  - Dyspnoea [Unknown]
  - Chills [Unknown]
  - Hypertension [Unknown]
  - Nausea [Unknown]
  - Neutrophil count decreased [Unknown]
  - Oxygen saturation decreased [Unknown]
  - Pallor [Unknown]
  - Tachycardia [Unknown]
